FAERS Safety Report 21823837 (Version 2)
Quarter: 2023Q1

REPORT INFORMATION
  Report Type: Report from Study
  Country: US (occurrence: US)
  Receive Date: 20230105
  Receipt Date: 20230106
  Transmission Date: 20230417
  Serious: No
  Sender: FDA-Public Use
  Company Number: US-ABBVIE-4231587

PATIENT
  Sex: Female

DRUGS (1)
  1. HUMIRA [Suspect]
     Active Substance: ADALIMUMAB
     Indication: Crohn^s disease
     Dosage: CF
     Route: 058
     Dates: start: 20211108

REACTIONS (4)
  - Haemorrhage [Unknown]
  - Crohn^s disease [Not Recovered/Not Resolved]
  - Inflammation [Not Recovered/Not Resolved]
  - Constipation [Unknown]
